FAERS Safety Report 8607311-4 (Version None)
Quarter: 2012Q3

REPORT INFORMATION
  Report Type: 
  Country: None (occurrence: None)
  Receive Date: 20120807
  Receipt Date: 20120726
  Transmission Date: 20120928
  Serious: Yes (Hospitalization)
  Sender: FDA-Public Use
  Company Number: 2012AP002228

PATIENT
  Age: 76 Year
  Sex: Male

DRUGS (5)
  1. SERTRALINE HYDROCHLORIDE [Suspect]
     Indication: DEPRESSION
     Dosage: 50 MG PO
     Route: 048
     Dates: start: 20111101, end: 20120101
  2. LEVOTHYROXINE SODIUM [Concomitant]
  3. CITALOPRAM HYDROBROMIDE [Suspect]
     Indication: DEPRESSION
     Dosage: 10 MG;PO ; 20 MG;PO
     Route: 048
     Dates: end: 20111101
  4. CITALOPRAM HYDROBROMIDE [Suspect]
     Indication: DEPRESSION
     Dosage: 10 MG;PO ; 20 MG;PO
     Route: 048
     Dates: start: 20120501
  5. OMEPRAZOLE [Concomitant]

REACTIONS (3)
  - DYSPNOEA [None]
  - COUGH [None]
  - PULMONARY FIBROSIS [None]
